FAERS Safety Report 20599497 (Version 2)
Quarter: 2022Q2

REPORT INFORMATION
  Report Type: Spontaneous
  Country: US (occurrence: None)
  Receive Date: 20220315
  Receipt Date: 20220421
  Transmission Date: 20220721
  Serious: No
  Sender: FDA-Public Use
  Company Number: 2022A108747

PATIENT
  Age: 65 Year
  Sex: Female
  Weight: 64.9 kg

DRUGS (10)
  1. BUDESONIDE\FORMOTEROL\GLYCOPYRRONIUM [Suspect]
     Active Substance: BUDESONIDE\FORMOTEROL\GLYCOPYRRONIUM
     Indication: Cough
     Dosage: 2 PUFFS AM
     Route: 055
     Dates: start: 20211109, end: 2022
  2. BUDESONIDE\FORMOTEROL\GLYCOPYRRONIUM [Suspect]
     Active Substance: BUDESONIDE\FORMOTEROL\GLYCOPYRRONIUM
     Indication: Cough
     Dosage: 2 PUFFS AM 2 PUFFS PM
     Route: 055
     Dates: start: 20210125, end: 2022
  3. BUDESONIDE\FORMOTEROL\GLYCOPYRRONIUM [Suspect]
     Active Substance: BUDESONIDE\FORMOTEROL\GLYCOPYRRONIUM
     Indication: Cough
     Dosage: 2 PUFFS IN THE MORNING AND ONE AT NIGHT
     Route: 055
     Dates: start: 20210308, end: 2022
  4. MUCINEX [Concomitant]
     Active Substance: GUAIFENESIN
  5. XYZAL [Concomitant]
     Active Substance: LEVOCETIRIZINE DIHYDROCHLORIDE
  6. UNSPECIFIED INGREDIENT [Concomitant]
     Active Substance: UNSPECIFIED INGREDIENT
  7. ALENDRONATE SODIUM [Concomitant]
     Active Substance: ALENDRONATE SODIUM
  8. CLONAZEPAM [Concomitant]
     Active Substance: CLONAZEPAM
     Dosage: IF PATIENT CANNOT SEE OUT OF THEIR EYE THEY CAN TAKE 3 PILLS A DAY
  9. BOTOX [Concomitant]
     Active Substance: ONABOTULINUMTOXINA
  10. UNSPECIFIED INGREDIENT [Concomitant]
     Active Substance: UNSPECIFIED INGREDIENT

REACTIONS (20)
  - COVID-19 [Unknown]
  - Feeling abnormal [Unknown]
  - Eye pain [Unknown]
  - Fatigue [Unknown]
  - Dysstasia [Unknown]
  - Rhinorrhoea [Unknown]
  - Tooth disorder [Unknown]
  - Dyspnoea [Unknown]
  - Ocular discomfort [Unknown]
  - Condition aggravated [Unknown]
  - Facial spasm [Unknown]
  - Stress [Unknown]
  - Dry mouth [Unknown]
  - Hypersensitivity [Unknown]
  - Cough [Unknown]
  - Dizziness [Unknown]
  - Device use issue [Unknown]
  - Device delivery system issue [Unknown]
  - Lung disorder [Unknown]
  - Seasonal allergy [Unknown]

NARRATIVE: CASE EVENT DATE: 20220101
